FAERS Safety Report 7426819-0 (Version None)
Quarter: 2011Q2

REPORT INFORMATION
  Report Type: 
  Country: None (occurrence: None)
  Receive Date: 20110420
  Receipt Date: 20110414
  Transmission Date: 20111010
  Serious: Yes (Death, Other)
  Sender: FDA-Public Use
  Company Number: US-BRISTOL-MYERS SQUIBB COMPANY-15676729

PATIENT
  Age: 83 Year
  Sex: Male

DRUGS (1)
  1. ERBITUX [Suspect]
     Dosage: LIQUID NO: OF DOSE-3
     Route: 042

REACTIONS (1)
  - MYOCARDIAL INFARCTION [None]
